FAERS Safety Report 17811450 (Version 6)
Quarter: 2021Q1

REPORT INFORMATION
  Report Type: Report from Study
  Country: TW (occurrence: TW)
  Receive Date: 20200521
  Receipt Date: 20210129
  Transmission Date: 20210419
  Serious: Yes (Death, Life-Threatening, Hospitalization)
  Sender: FDA-Public Use
  Company Number: TW-BAYER-2019-232911

PATIENT
  Age: 58 Year
  Sex: Male
  Weight: 68 kg

DRUGS (128)
  1. STIVARGA [Suspect]
     Active Substance: REGORAFENIB
     Indication: HEPATOCELLULAR CARCINOMA
     Dosage: 80 MG, QD
     Dates: start: 20191126, end: 20200406
  2. STIVARGA [Suspect]
     Active Substance: REGORAFENIB
     Indication: HEPATOCELLULAR CARCINOMA
     Dosage: 80 MG, QD
     Dates: start: 20200410, end: 20200515
  3. STIVARGA [Suspect]
     Active Substance: REGORAFENIB
     Indication: HEPATOCELLULAR CARCINOMA
     Dosage: 80 MG, QD
     Dates: start: 20200525, end: 20200619
  4. ACETAMINOPHEN. [Concomitant]
     Active Substance: ACETAMINOPHEN
     Dosage: 500 MG, PRN
     Dates: start: 20200811
  5. SENNA LEAF [Concomitant]
     Active Substance: SENNA LEAF
     Dosage: 15 MG, QD
     Dates: start: 20191220, end: 20191223
  6. INDERAL [Concomitant]
     Active Substance: PROPRANOLOL HYDROCHLORIDE
     Dosage: 60 MG, BID
     Dates: start: 20200512
  7. MEROPENEM. [Concomitant]
     Active Substance: MEROPENEM
     Indication: PYREXIA
     Dosage: 2000 MG, ONCE
     Dates: start: 20200721, end: 20200721
  8. MEROPENEM. [Concomitant]
     Active Substance: MEROPENEM
     Indication: PYREXIA
     Dosage: 500 MG, QD
     Dates: start: 20200808, end: 20200811
  9. MEROPENEM. [Concomitant]
     Active Substance: MEROPENEM
     Indication: PYREXIA
     Dosage: 500 MG, ONCE
     Dates: start: 20200808, end: 20200809
  10. VITAGEN [GLUCOSE] [Concomitant]
     Dosage: 100 %, ONCE
     Dates: start: 20200721, end: 20200722
  11. POT PHOSPHATE [Concomitant]
     Dosage: 20 ML, QD
     Dates: start: 20200724
  12. CHLORPHENIRAMINE [CHLORPHENAMINE] [Concomitant]
     Active Substance: CHLORPHENIRAMINE
     Dosage: 5 MG, ONCE
     Dates: start: 20200731, end: 20200801
  13. DEXMEDETOMIDINE. [Concomitant]
     Active Substance: DEXMEDETOMIDINE
     Indication: HYPOTENSION
     Dosage: 200 U, ONCE
     Dates: start: 20200802, end: 20200803
  14. STIVARGA [Suspect]
     Active Substance: REGORAFENIB
     Indication: HEPATOCELLULAR CARCINOMA
     Dosage: UNK
     Dates: start: 20200722, end: 20200822
  15. ACETAMINOPHEN. [Concomitant]
     Active Substance: ACETAMINOPHEN
     Dosage: 500 MG, PRN
     Dates: start: 20200721
  16. SENNA LEAF [Concomitant]
     Active Substance: SENNA LEAF
     Dosage: 15 MG, QD
     Dates: start: 20191220, end: 20191224
  17. CEFUROXIME. [Concomitant]
     Active Substance: CEFUROXIME
     Dosage: 1500 MG, TID
     Dates: start: 20191222, end: 20191224
  18. CARDOLOL [Concomitant]
     Active Substance: PROPRANOLOL HYDROCHLORIDE
     Dosage: 40 MG, ONCE
     Dates: start: 20200623, end: 20200624
  19. INDERAL [Concomitant]
     Active Substance: PROPRANOLOL HYDROCHLORIDE
     Dosage: 40 MG, BID
     Dates: start: 20200428, end: 20200511
  20. BOWKLEAN [Concomitant]
     Dosage: 32.4 G, ONCE
     Dates: start: 20200622, end: 20200623
  21. HUMAN ALBUMIN GRIFOLS [Concomitant]
     Active Substance: ALBUMIN HUMAN
     Indication: HYPOALBUMINAEMIA
     Dosage: 100 %, ONCE
     Dates: start: 20200721, end: 20200721
  22. MIDAZOLAM. [Concomitant]
     Active Substance: MIDAZOLAM
     Dosage: 5 MG, ONCE
     Dates: start: 20200721
  23. MIDAZOLAM. [Concomitant]
     Active Substance: MIDAZOLAM
     Dosage: 5 MG, ONCE
     Dates: start: 20200722
  24. FRESOFOL [Concomitant]
     Dosage: 2 %, QID
     Dates: start: 20200725, end: 20200725
  25. FRESOFOL [Concomitant]
     Dosage: 2 %, QID
     Dates: start: 20200802, end: 20200803
  26. COLIMYCIN [COLISTIN SULFATE] [Concomitant]
     Dosage: 233.8 MG, BID
     Dates: start: 20200726, end: 20200727
  27. TIGECYCLINE. [Concomitant]
     Active Substance: TIGECYCLINE
     Dosage: 25 MG, BID
     Dates: start: 20200726, end: 20200727
  28. VORICONAZOLE. [Concomitant]
     Active Substance: VORICONAZOLE
     Dosage: 200 MG, BID
     Dates: start: 20200728
  29. TRAMADOL HCL [Concomitant]
     Active Substance: TRAMADOL HYDROCHLORIDE
     Dosage: 100 MG, PRN
     Dates: start: 20200820, end: 20200820
  30. CEFADROXIL. [Concomitant]
     Active Substance: CEFADROXIL
     Dosage: 1000 MG, BID
     Dates: start: 20191220, end: 20191223
  31. ACETAMINOPHEN. [Concomitant]
     Active Substance: ACETAMINOPHEN
     Dosage: 500 MG, QID
     Dates: start: 20191220, end: 20191224
  32. ACETAMINOPHEN. [Concomitant]
     Active Substance: ACETAMINOPHEN
     Dosage: 500 MG, PRN
     Dates: start: 20200728
  33. LIPITOR [Concomitant]
     Active Substance: ATORVASTATIN CALCIUM
     Dosage: 20 MG, QD
     Dates: start: 20200406, end: 20200410
  34. CARDOLOL [Concomitant]
     Active Substance: PROPRANOLOL HYDROCHLORIDE
     Dosage: 10 MG, BID
     Dates: start: 20200410, end: 20200424
  35. TEICOPLANIN [Concomitant]
     Active Substance: TEICOPLANIN
     Indication: PYREXIA
     Dosage: 600 MG, ONCE
     Dates: start: 20200721, end: 20200721
  36. LEVOPHED [Concomitant]
     Active Substance: NOREPINEPHRINE BITARTRATE
     Dosage: 8 MG, ONCE
     Dates: start: 20200721, end: 20200721
  37. MIDAZOLAM. [Concomitant]
     Active Substance: MIDAZOLAM
     Dosage: 5 MG, ONCE
     Dates: start: 20200721, end: 20200721
  38. MEROPENEM. [Concomitant]
     Active Substance: MEROPENEM
     Indication: PYREXIA
     Dosage: 500 MG, ONCE
     Dates: start: 20200804, end: 20200805
  39. VITAGEN [GLUCOSE] [Concomitant]
     Dosage: 5 %, ONCE
     Dates: start: 20200721, end: 20200721
  40. POT PHOSPHATE [Concomitant]
     Dosage: 20 ML, QD
     Dates: start: 20200727
  41. FRESOFOL [Concomitant]
     Dosage: 2 %, QID
     Dates: start: 20200801, end: 20200802
  42. CHLORPHENIRAMINE [CHLORPHENAMINE] [Concomitant]
     Active Substance: CHLORPHENIRAMINE
     Dosage: 5 MG, ONCE
     Dates: start: 20200801, end: 20200802
  43. ALBUMINA GRIFOLS [Concomitant]
     Indication: HYPOALBUMINAEMIA
     Dosage: 25 %, BID
     Dates: start: 20200731, end: 20200803
  44. ACETYLCYSTEINE. [Concomitant]
     Active Substance: ACETYLCYSTEINE
     Indication: PRODUCTIVE COUGH
     Dosage: 600 MG, BID
     Dates: start: 20200805, end: 20200806
  45. ACETYLCYSTEINE. [Concomitant]
     Active Substance: ACETYLCYSTEINE
     Indication: PRODUCTIVE COUGH
     Dosage: 600 MG, QID
     Dates: start: 20200806, end: 20200806
  46. NOREPINEPHRINE. [Concomitant]
     Active Substance: NOREPINEPHRINE
     Indication: HYPOTENSION
     Dosage: 8 MG, ONCE
     Dates: start: 20200806, end: 20200807
  47. NOREPINEPHRINE. [Concomitant]
     Active Substance: NOREPINEPHRINE
     Indication: HYPOTENSION
     Dosage: 8 MG, Q8HR
     Dates: start: 20200812
  48. STIVARGA [Suspect]
     Active Substance: REGORAFENIB
     Indication: HEPATOCELLULAR CARCINOMA
     Dosage: 80 MG, QD
     Dates: start: 20200628, end: 20200721
  49. POTASSIUM CHLORIDE. [Concomitant]
     Active Substance: POTASSIUM CHLORIDE
     Dosage: 90 %, ONCE
     Dates: start: 20200724
  50. POTASSIUM CHLORIDE. [Concomitant]
     Active Substance: POTASSIUM CHLORIDE
     Dosage: 90 %, QD
     Dates: start: 20200724
  51. FRESOFOL [Concomitant]
     Dosage: 2 %, QID
     Dates: start: 20200726, end: 20200727
  52. LINAGLIPTIN [Concomitant]
     Active Substance: LINAGLIPTIN
     Indication: TYPE 2 DIABETES MELLITUS
     Dosage: 5 MG, QD
     Dates: start: 20200726
  53. VORICONAZOLE. [Concomitant]
     Active Substance: VORICONAZOLE
     Dosage: 200 MG, ONCE
     Dates: start: 20200728
  54. CHLORPHENIRAMINE [CHLORPHENAMINE] [Concomitant]
     Active Substance: CHLORPHENIRAMINE
     Dosage: 5 MG, ONCE
     Dates: start: 20200802, end: 20200803
  55. NOREPINEPHRINE. [Concomitant]
     Active Substance: NOREPINEPHRINE
     Indication: HYPOTENSION
     Dosage: 8 MG, PRN
     Dates: start: 20200806, end: 20200807
  56. COMBIVENT [Concomitant]
     Active Substance: ALBUTEROL SULFATE\IPRATROPIUM BROMIDE
     Dosage: 2.5 ML, PRN
     Dates: start: 20200809, end: 20200809
  57. TRACETON [Concomitant]
     Dosage: UNK, PRN
     Dates: start: 20200812
  58. SMECTA [MONTMORILLONITE] [Concomitant]
     Indication: DIARRHOEA
     Dosage: 3 G, TID
     Dates: start: 20200816, end: 20200817
  59. STIVARGA [Suspect]
     Active Substance: REGORAFENIB
     Indication: HEPATOCELLULAR CARCINOMA
     Dosage: 80 MG, QD
     Dates: start: 20191001, end: 20191113
  60. MORPHINE HCL [Concomitant]
     Active Substance: MORPHINE HYDROCHLORIDE
     Dosage: 10 MG, ONCE
     Dates: start: 20200723, end: 20200724
  61. SENNA LEAF [Concomitant]
     Active Substance: SENNA LEAF
     Dosage: 15 MG, QD
     Dates: start: 20200121, end: 20200217
  62. CARDOLOL [Concomitant]
     Active Substance: PROPRANOLOL HYDROCHLORIDE
     Dosage: 80 MG, BID
     Dates: start: 20200602, end: 20200623
  63. CARDOLOL [Concomitant]
     Active Substance: PROPRANOLOL HYDROCHLORIDE
     Dosage: 40 MG, BID
     Dates: start: 20200623, end: 20200624
  64. MEROPENEM. [Concomitant]
     Active Substance: MEROPENEM
     Indication: PYREXIA
     Dosage: 0.5 MG, QD
     Dates: start: 20200804, end: 20200804
  65. HEPARIN SOD [Concomitant]
     Active Substance: HEPARIN SODIUM
     Dosage: 1000 UNIT, QD
     Dates: start: 20200723, end: 20200724
  66. POT PHOSPHATE [Concomitant]
     Dosage: 20 ML, ONCE
     Dates: start: 20200724, end: 20200724
  67. FRESOFOL [Concomitant]
     Dosage: 2 %, QID
     Dates: start: 20200731, end: 20200801
  68. COLIMYCIN [COLISTIN SULFATE] [Concomitant]
     Dosage: 300.6 MG, ONCE
     Dates: start: 20200726, end: 20200727
  69. CHLORPHENIRAMINE [CHLORPHENAMINE] [Concomitant]
     Active Substance: CHLORPHENIRAMINE
     Dosage: 5 MG, ONCE
     Dates: start: 20200805, end: 20200806
  70. ALBUMINA GRIFOLS [Concomitant]
     Indication: HYPOALBUMINAEMIA
     Dosage: 100 %, ONCE
     Dates: start: 20200816, end: 20200817
  71. NOREPINEPHRINE. [Concomitant]
     Active Substance: NOREPINEPHRINE
     Indication: HYPOTENSION
     Dosage: 8 MG, PRN
     Dates: start: 20200807, end: 20200809
  72. MORPHINE HCL [Concomitant]
     Active Substance: MORPHINE HYDROCHLORIDE
     Dosage: 40 MG, ONCE
     Dates: start: 20191220, end: 20191221
  73. CARDOLOL [Concomitant]
     Active Substance: PROPRANOLOL HYDROCHLORIDE
     Dosage: 10 MG, BID
     Dates: start: 20200408, end: 20200408
  74. CARDOLOL [Concomitant]
     Active Substance: PROPRANOLOL HYDROCHLORIDE
     Dosage: 10 MG, BID
     Dates: start: 20200408, end: 20200410
  75. CARDOLOL [Concomitant]
     Active Substance: PROPRANOLOL HYDROCHLORIDE
     Dosage: 20 MG, BID
     Dates: start: 20200421, end: 20200428
  76. BISACODYL. [Concomitant]
     Active Substance: BISACODYL
     Dosage: 15 MG, ONCE
     Dates: start: 20200622, end: 20200623
  77. ROLIKAN [Concomitant]
     Dosage: 28 %, ONCE
     Dates: start: 20200721, end: 20200721
  78. LACTULOSE. [Concomitant]
     Active Substance: LACTULOSE
     Dosage: 600 MG, ONCE
     Dates: start: 20200721, end: 20200721
  79. LACTULOSE. [Concomitant]
     Active Substance: LACTULOSE
     Dosage: 600 MG, TID
     Dates: start: 20200820, end: 20200822
  80. VITAGEN [GLUCOSE] [Concomitant]
     Dosage: 200 %, ONCE
     Dates: start: 20200721, end: 20200721
  81. VITAGEN [GLUCOSE] [Concomitant]
     Dosage: 100 %, ONCE
     Dates: start: 20200811, end: 20200812
  82. VITAGEN [GLUCOSE] [Concomitant]
     Dosage: 100 %, PRN
     Dates: start: 20200811, end: 20200812
  83. POTASSIUM CHLORIDE. [Concomitant]
     Active Substance: POTASSIUM CHLORIDE
     Dosage: 15 %, QD
     Dates: start: 20200729
  84. POTASSIUM CHLORIDE. [Concomitant]
     Active Substance: POTASSIUM CHLORIDE
     Dosage: 90 %, QD
     Dates: start: 20200803, end: 20200804
  85. FRESOFOL [Concomitant]
     Dosage: 2 %, QID
     Dates: start: 20200729
  86. FRESOFOL [Concomitant]
     Dosage: 2 %, QID
     Dates: start: 20200730, end: 20200731
  87. TIGECYCLINE. [Concomitant]
     Active Substance: TIGECYCLINE
     Dosage: 100 MG, ONCE
     Dates: start: 20200726, end: 20200727
  88. LINAGLIPTIN [Concomitant]
     Active Substance: LINAGLIPTIN
     Indication: TYPE 2 DIABETES MELLITUS
     Dosage: 5 MG, QD
     Dates: start: 20200810, end: 20200811
  89. ACETYLCYSTEINE. [Concomitant]
     Active Substance: ACETYLCYSTEINE
     Indication: PRODUCTIVE COUGH
     Dosage: 600 MG, BID
     Dates: start: 20200820, end: 20200822
  90. NOREPINEPHRINE. [Concomitant]
     Active Substance: NOREPINEPHRINE
     Indication: HYPOTENSION
     Dosage: 8 MG, BID
     Dates: start: 20200809, end: 20200812
  91. KALIMATE [Concomitant]
     Active Substance: CALCIUM POLYSTYRENE SULFONATE
     Indication: HYPERKALAEMIA
     Dosage: 5 G, TID
     Dates: start: 20200810, end: 20200813
  92. KALIMATE [Concomitant]
     Active Substance: CALCIUM POLYSTYRENE SULFONATE
     Indication: HYPERKALAEMIA
     Dosage: 5 G, TID
     Dates: start: 20200813, end: 20200816
  93. CEFAZOLIN [Concomitant]
     Active Substance: CEFAZOLIN
     Dosage: 1000 MG, PRN
     Dates: start: 20191219, end: 20191220
  94. MORPHINE HCL [Concomitant]
     Active Substance: MORPHINE HYDROCHLORIDE
     Dosage: 20 MG, ONCE
     Dates: start: 20200821, end: 20200822
  95. CEFADROXIL. [Concomitant]
     Active Substance: CEFADROXIL
     Dosage: 1000 MG, BID
     Dates: start: 20191220, end: 20191222
  96. MIDAZOLAM. [Concomitant]
     Active Substance: MIDAZOLAM
     Dosage: 5 MG, ONCE
     Dates: start: 20200721, end: 20200722
  97. MEROPENEM. [Concomitant]
     Active Substance: MEROPENEM
     Indication: PYREXIA
     Dosage: 500 MG, QD
     Dates: start: 20200804, end: 20200805
  98. POTASSIUM CHLORIDE. [Concomitant]
     Active Substance: POTASSIUM CHLORIDE
     Dosage: 15 %, QD
     Dates: start: 20200727
  99. FRESOFOL [Concomitant]
     Dosage: 2 %, QID
     Dates: start: 20200725, end: 20200726
  100. FRESOFOL [Concomitant]
     Dosage: 2 %, ONCE
     Dates: start: 20200731, end: 20200801
  101. CIPROFLOXACIN. [Concomitant]
     Active Substance: CIPROFLOXACIN
     Dosage: 400 MG, BID
     Dates: start: 20200726
  102. CIPROFLOXACIN. [Concomitant]
     Active Substance: CIPROFLOXACIN
     Dosage: 400 MG, BID
     Dates: start: 20200728
  103. INSULIN DETEMIR [Concomitant]
     Active Substance: INSULIN DETEMIR
     Indication: TYPE 2 DIABETES MELLITUS
     Dosage: 300 IU, QD
     Dates: start: 20200804, end: 20200811
  104. ACETYLCYSTEINE. [Concomitant]
     Active Substance: ACETYLCYSTEINE
     Indication: PRODUCTIVE COUGH
     Dosage: 600 MG, BID
     Dates: start: 20200806, end: 20200819
  105. NOREPINEPHRINE. [Concomitant]
     Active Substance: NOREPINEPHRINE
     Indication: HYPOTENSION
     Dosage: 8 MG, PRN
     Dates: start: 20200806, end: 20200806
  106. NOREPINEPHRINE. [Concomitant]
     Active Substance: NOREPINEPHRINE
     Indication: HYPOTENSION
     Dosage: 8 MG, Q8HR
     Dates: start: 20200820, end: 20200822
  107. MIDORINE [Concomitant]
     Active Substance: MIDODRINE
     Indication: HYPOTENSION
     Dosage: 10 MG, TID
     Dates: start: 20200807, end: 20200817
  108. TRACETON [Concomitant]
     Dosage: UNK UNK, BID
     Dates: start: 20200809
  109. SILVER SULFADIAZINE. [Concomitant]
     Active Substance: SILVER SULFADIAZINE
     Dosage: 1 %, BID
     Dates: start: 20200810
  110. SMECTA [MONTMORILLONITE] [Concomitant]
     Indication: DIARRHOEA
     Dosage: 3 G, TID
     Dates: start: 20200817
  111. TRAMADOL HCL [Concomitant]
     Active Substance: TRAMADOL HYDROCHLORIDE
     Dosage: 100 MG, BID
     Dates: start: 20200820, end: 20200821
  112. LIPITOR [Concomitant]
     Active Substance: ATORVASTATIN CALCIUM
     Dosage: 20 MG, QD
     Dates: start: 20200410, end: 20200424
  113. LASIX [Concomitant]
     Active Substance: FUROSEMIDE
     Dosage: 20 MG, ONCE
     Dates: start: 20200620, end: 20200621
  114. TAZOCIN [Concomitant]
     Active Substance: PIPERACILLIN SODIUM\TAZOBACTAM SODIUM
     Indication: PYREXIA
     Dosage: 2.25 G, ONCE
     Dates: start: 20200721, end: 20200721
  115. TEICOPLANIN [Concomitant]
     Active Substance: TEICOPLANIN
     Indication: URINARY TRACT INFECTION
     Dosage: 600 MG, ONCE
     Dates: start: 20200722
  116. TEICOPLANIN [Concomitant]
     Active Substance: TEICOPLANIN
     Indication: PYREXIA
     Dosage: 600 MG, ONCE
     Dates: start: 20200722
  117. MEROPENEM. [Concomitant]
     Active Substance: MEROPENEM
     Indication: PYREXIA
     Dosage: 1000 MG, ONCE
     Dates: start: 20200721, end: 20200721
  118. VITAGEN [GLUCOSE] [Concomitant]
     Dosage: 100 %, ONCE
     Dates: start: 20200722
  119. ASCORBIC ACID. [Concomitant]
     Active Substance: ASCORBIC ACID
     Dosage: 500 MG, QID
     Dates: start: 20200722
  120. FENTANYL. [Concomitant]
     Active Substance: FENTANYL
     Dosage: 0.5 MG, Q4HR
     Dates: start: 20200724
  121. FENTANYL. [Concomitant]
     Active Substance: FENTANYL
     Dosage: 0.5 MG, Q4HR
     Dates: start: 20200730, end: 20200804
  122. POT PHOSPHATE [Concomitant]
     Dosage: 20 ML, QD
     Dates: start: 20200803, end: 20200804
  123. POTASSIUM CHLORIDE. [Concomitant]
     Active Substance: POTASSIUM CHLORIDE
     Dosage: 15 %, QD
     Dates: start: 20200731, end: 20200803
  124. FRESOFOL [Concomitant]
     Dosage: 2 %, QID
     Dates: start: 20200727
  125. FRESOFOL [Concomitant]
     Dosage: 2 %, QID
     Dates: start: 20200728
  126. FRESOFOL [Concomitant]
     Dosage: 2 %, Q4HR
     Dates: start: 20200804, end: 20200804
  127. CHLORPHENIRAMINE [CHLORPHENAMINE] [Concomitant]
     Active Substance: CHLORPHENIRAMINE
     Dosage: 5 MG, ONCE
     Dates: start: 20200803, end: 20200804
  128. INSULIN REGULAR HM [Concomitant]
     Active Substance: INSULIN NOS
     Indication: TYPE 2 DIABETES MELLITUS
     Dosage: 5 IU, ONCE
     Dates: start: 20200810, end: 20200810

REACTIONS (14)
  - Melaena [Recovered/Resolved]
  - Upper gastrointestinal haemorrhage [Recovered/Resolved]
  - Hyperkalaemia [Recovering/Resolving]
  - Urinary tract infection [Not Recovered/Not Resolved]
  - Pneumonia [Not Recovered/Not Resolved]
  - Acute hepatic failure [Not Recovered/Not Resolved]
  - Malignant neoplasm of renal pelvis [Not Recovered/Not Resolved]
  - Melaena [Recovered/Resolved]
  - Oesophageal varices haemorrhage [Recovered/Resolved]
  - Duodenal ulcer haemorrhage [Recovered/Resolved]
  - Melaena [Recovered/Resolved]
  - Septic shock [Not Recovered/Not Resolved]
  - Acute kidney injury [Recovering/Resolving]
  - Upper gastrointestinal haemorrhage [Recovering/Resolving]

NARRATIVE: CASE EVENT DATE: 20191219
